FAERS Safety Report 21407158 (Version 1)
Quarter: 2022Q4

REPORT INFORMATION
  Report Type: Spontaneous
  Country: GB (occurrence: GB)
  Receive Date: 20221004
  Receipt Date: 20221004
  Transmission Date: 20230113
  Serious: Yes (Hospitalization, Disabling, Other)
  Sender: FDA-Public Use
  Company Number: None

PATIENT
  Sex: Female

DRUGS (7)
  1. DESOGESTREL [Suspect]
     Active Substance: DESOGESTREL
     Dosage: UNK
     Route: 048
  2. DESOGESTREL [Suspect]
     Active Substance: DESOGESTREL
     Dosage: UNK
  3. ETHINYL ESTRADIOL [Suspect]
     Active Substance: ETHINYL ESTRADIOL
  4. ETHINYL ESTRADIOL\LEVONORGESTREL [Suspect]
     Active Substance: ETHINYL ESTRADIOL\LEVONORGESTREL
  5. LEVONORGESTREL [Suspect]
     Active Substance: LEVONORGESTREL
  6. ETHINYL ESTRADIOL\LEVONORGESTREL ACETATE [Suspect]
     Active Substance: ETHINYL ESTRADIOL\LEVONORGESTREL ACETATE
  7. ETHINYL ESTRADIOL\LEVONORGESTREL [Suspect]
     Active Substance: ETHINYL ESTRADIOL\LEVONORGESTREL

REACTIONS (1)
  - Polycystic ovaries [Not Recovered/Not Resolved]
